FAERS Safety Report 4270645-0 (Version None)
Quarter: 2004Q1

REPORT INFORMATION
  Report Type: 
  Country: None (occurrence: None)
  Receive Date: 20040114
  Receipt Date: 20040106
  Transmission Date: 20041129
  Serious: Yes (Other)
  Sender: FDA-Public Use
  Company Number: PHFR2004GB00493

PATIENT
  Age: 50 Year
  Sex: Male
  Weight: 99 kg

DRUGS (6)
  1. VALSARTAN [Suspect]
     Indication: ANGINA PECTORIS
     Dosage: 40MG/DAY
     Route: 048
     Dates: start: 20030509
  2. VALSARTAN [Suspect]
     Dosage: 80MG/DAY
     Route: 048
  3. VALSARTAN [Suspect]
     Dosage: DOSE DECREASED
     Dates: start: 20031215
  4. CANDESARTAN [Concomitant]
     Indication: ANGINA PECTORIS
     Dosage: 4MG/DAY
     Route: 048
     Dates: start: 20030331
  5. ATORVASTATIN [Concomitant]
     Indication: HYPERLIPIDAEMIA
     Dosage: 10MG/DAY
     Route: 048
     Dates: start: 20001001
  6. ASPIRIN [Concomitant]
     Indication: ANGINA PECTORIS
     Dosage: 75MG/DAY
     Route: 048
     Dates: start: 20000301

REACTIONS (1)
  - PSORIASIS [None]
